FAERS Safety Report 9672184 (Version 1)
Quarter: 2013Q4

REPORT INFORMATION
  Report Type: Spontaneous
  Country: US (occurrence: US)
  Receive Date: 20131106
  Receipt Date: 20131106
  Transmission Date: 20140711
  Serious: Yes (Death)
  Sender: FDA-Public Use
  Company Number: US-ENDO PHARMACEUTICALS INC.-HCDA20130006

PATIENT
  Age: 43 Year
  Sex: Male
  Weight: 109.41 kg

DRUGS (5)
  1. HYDROCODONE/ACETAMINOPHEN 10MG/500MG [Suspect]
     Indication: PAIN
     Dosage: UNKNOWN
     Route: 048
     Dates: start: 20121013
  2. HYDROCODONE/ACETAMINOPHEN 10MG/500MG [Suspect]
     Dosage: 20/2000 MG
     Route: 048
     Dates: start: 20121013, end: 2012
  3. MARIJUANA [Concomitant]
     Indication: DRUG ABUSE
     Dosage: UNKNOWN
     Route: 065
  4. VERAPAMIL [Concomitant]
     Indication: PRODUCT USED FOR UNKNOWN INDICATION
     Dosage: UNKNOWN
     Route: 065
  5. WARFARIN [Concomitant]
     Indication: ANTICOAGULANT THERAPY
     Dosage: UNKNOWN
     Route: 065

REACTIONS (1)
  - Toxicity to various agents [None]
